FAERS Safety Report 8176838-4 (Version None)
Quarter: 2012Q1

REPORT INFORMATION
  Report Type: 
  Country: None (occurrence: None)
  Receive Date: 20120124
  Receipt Date: 20110805
  Transmission Date: 20120608
  Serious: Yes (Hospitalization)
  Sender: FDA-Public Use
  Company Number: WAES 1108USA00747

PATIENT
  Sex: Female

DRUGS (1)
  1. INVANZ [Suspect]
     Indication: SEPSIS
     Dosage: IV
     Route: 042

REACTIONS (4)
  - WRONG TECHNIQUE IN DRUG USAGE PROCESS [None]
  - MALAISE [None]
  - DRUG DOSE OMISSION [None]
  - PRODUCT LABEL ISSUE [None]
